FAERS Safety Report 19564721 (Version 1)
Quarter: 2021Q3

REPORT INFORMATION
  Report Type: Spontaneous
  Country: US (occurrence: US)
  Receive Date: 20210716
  Receipt Date: 20210716
  Transmission Date: 20211014
  Serious: No
  Sender: FDA-Public Use
  Company Number: US-ORGANON-O2107USA001141

PATIENT
  Age: 23 Year
  Sex: Female
  Weight: 83.4 kg

DRUGS (2)
  1. NEXPLANON [Suspect]
     Active Substance: ETONOGESTREL
     Dosage: 1 ROD
     Route: 059
  2. NEXPLANON [Suspect]
     Active Substance: ETONOGESTREL
     Dosage: 1 ROD (DOSE REPORTED AS 68 MG ROD)
     Route: 059
     Dates: start: 20210709

REACTIONS (2)
  - Product quality issue [Unknown]
  - Complication of device insertion [Unknown]

NARRATIVE: CASE EVENT DATE: 20210709
